FAERS Safety Report 5398692-6 (Version None)
Quarter: 2007Q3

REPORT INFORMATION
  Report Type: 
  Country: None (occurrence: None)
  Receive Date: 20070726
  Receipt Date: 20060919
  Transmission Date: 20080115
  Serious: No
  Sender: FDA-Public Use
  Company Number: US-AMGEN-US194303

PATIENT
  Age: 80 Year
  Sex: Male
  Weight: 56 kg

DRUGS (10)
  1. EPOGEN [Suspect]
     Indication: DIALYSIS
     Route: 042
     Dates: start: 20030818
  2. VENOFER [Concomitant]
     Dates: start: 20060626
  3. ZEMPLAR [Concomitant]
     Dates: start: 20060909
  4. ACTOS [Concomitant]
     Dates: start: 20051108
  5. NEPHRO-VITE [Concomitant]
     Dates: start: 20050301
  6. PRAVACHOL [Concomitant]
     Dates: start: 20041005
  7. PRAZOSIN HCL [Concomitant]
     Dates: start: 20051108
  8. RENAGEL [Concomitant]
     Dates: start: 20060523
  9. TRANDATE [Concomitant]
     Dates: start: 20050329
  10. VASOTEC [Concomitant]
     Dates: start: 20040902

REACTIONS (1)
  - ANAEMIA [None]
